FAERS Safety Report 9315655 (Version 2)
Quarter: 2014Q1

REPORT INFORMATION
  Report Type: Spontaneous
  Country: US (occurrence: US)
  Receive Date: 20130529
  Receipt Date: 20140327
  Transmission Date: 20141002
  Serious: Yes (Other)
  Sender: FDA-Public Use
  Company Number: CHPA2011US02532

PATIENT
  Age: 69 Year
  Sex: Female

DRUGS (7)
  1. 4 WAY SALINE MOISTURIZING MIST [Suspect]
     Indication: EPISTAXIS
     Dosage: 2 DF, QH
     Route: 045
     Dates: end: 20110209
  2. 4 WAY SALINE MOISTURIZING MIST [Suspect]
     Indication: NASAL DRYNESS
  3. 4 WAY SALINE MOISTURIZING MIST [Suspect]
     Indication: OFF LABEL USE
  4. ASACOL [Suspect]
     Indication: COLITIS
     Dosage: 800, UNK
     Dates: start: 201304, end: 201305
  5. ASACOL [Suspect]
     Dosage: 400, UNK
     Dates: end: 201304
  6. MESALAMINE [Concomitant]
     Indication: COLITIS
     Dosage: 400, UNK
     Dates: start: 201305
  7. BENADRYL DYE-FREE [Concomitant]
     Dosage: UNK, UNK

REACTIONS (9)
  - Atrial fibrillation [Recovering/Resolving]
  - Swollen tongue [Recovered/Resolved]
  - Lip swelling [Recovered/Resolved]
  - Urticaria [Not Recovered/Not Resolved]
  - Eye irritation [Not Recovered/Not Resolved]
  - Throat irritation [Not Recovered/Not Resolved]
  - Nasal discomfort [Not Recovered/Not Resolved]
  - Nasal dryness [Not Recovered/Not Resolved]
  - Epistaxis [Not Recovered/Not Resolved]
